FAERS Safety Report 7131639-0 (Version None)
Quarter: 2010Q4

REPORT INFORMATION
  Report Type: 
  Country: None (occurrence: None)
  Receive Date: 20101201
  Receipt Date: 20101122
  Transmission Date: 20110411
  Serious: Yes (Death, Other)
  Sender: FDA-Public Use
  Company Number: JP-PFIZER INC-2010140261

PATIENT
  Age: 80 Year
  Sex: Male

DRUGS (7)
  1. LYRICA [Suspect]
     Indication: POST HERPETIC NEURALGIA
     Dosage: 75 MG, 2X/DAY
     Route: 048
     Dates: end: 20101008
  2. LYRICA [Suspect]
     Dosage: 225 MG, DAILY
     Route: 048
     Dates: start: 20101009, end: 20101016
  3. DESYREL [Suspect]
     Indication: HERPES ZOSTER
     Dosage: 25 MG, 1X/DAY
     Route: 048
     Dates: start: 20100921, end: 20101017
  4. RISPERDAL [Suspect]
     Indication: DELIRIUM
     Dosage: 0.5 MG, 1X/DAY
     Route: 048
     Dates: start: 20100925, end: 20101017
  5. FLIVAS [Suspect]
     Indication: POLLAKIURIA
     Dosage: 25 MG, 1X/DAY
     Route: 048
     Dates: start: 20100918, end: 20101015
  6. FLIVAS [Suspect]
     Indication: HYPERTONIC BLADDER
  7. TEGRETOL [Suspect]
     Indication: HERPES ZOSTER
     Dosage: 50 MG, 2X/DAY
     Route: 048
     Dates: start: 20100926, end: 20101009

REACTIONS (4)
  - DISEASE PROGRESSION [None]
  - MELAENA [None]
  - METASTATIC NEOPLASM [None]
  - PARKINSONISM [None]
